FAERS Safety Report 9241141 (Version 10)
Quarter: 2016Q3

REPORT INFORMATION
  Report Type: Spontaneous
  Country: US (occurrence: US)
  Receive Date: 20130419
  Receipt Date: 20160805
  Transmission Date: 20161109
  Serious: Yes (Other)
  Sender: FDA-Public Use
  Company Number: US-009507513-1304USA008285

PATIENT
  Sex: Male
  Weight: 80.64 kg

DRUGS (2)
  1. PROPECIA [Suspect]
     Active Substance: FINASTERIDE
     Indication: ANDROGENETIC ALOPECIA
     Dosage: 1 MG, QD
     Route: 048
     Dates: start: 20050519, end: 20070806
  2. PROPECIA [Suspect]
     Active Substance: FINASTERIDE
     Dosage: 1 MG, QD
     Route: 048
     Dates: start: 20100722, end: 20110509

REACTIONS (19)
  - Anger [Unknown]
  - Drug hypersensitivity [Unknown]
  - Sexual dysfunction [Not Recovered/Not Resolved]
  - Drug abuse [Recovering/Resolving]
  - Cognitive disorder [Not Recovered/Not Resolved]
  - Emotional disorder [Not Recovered/Not Resolved]
  - Depression [Not Recovered/Not Resolved]
  - Depressed mood [Unknown]
  - Folliculitis [Unknown]
  - Psychomotor hyperactivity [Unknown]
  - Seborrhoea [Unknown]
  - Male orgasmic disorder [Unknown]
  - Generalised anxiety disorder [Not Recovered/Not Resolved]
  - Off label use [Unknown]
  - Sleep disorder [Unknown]
  - Pyoderma [Unknown]
  - Anger [Unknown]
  - Erectile dysfunction [Unknown]
  - Obsessive thoughts [Recovering/Resolving]

NARRATIVE: CASE EVENT DATE: 200511
